FAERS Safety Report 7988117-6 (Version None)
Quarter: 2011Q4

REPORT INFORMATION
  Report Type: 
  Country: None (occurrence: None)
  Receive Date: 20111216
  Receipt Date: 20111208
  Transmission Date: 20120403
  Serious: Yes (Hospitalization)
  Sender: FDA-Public Use
  Company Number: JP-SP-2011-11775

PATIENT
  Sex: Male

DRUGS (7)
  1. METHYLCOBALAMIN [Concomitant]
     Indication: NEUROPATHY PERIPHERAL
  2. DIPHENHYDRAMINE HCL [Concomitant]
     Indication: PRURITUS
  3. IMMUCYST [Suspect]
     Indication: BLADDER CANCER
     Route: 043
     Dates: start: 20111025, end: 20111101
  4. L-GLUTAMINE-AZULENE [Concomitant]
     Indication: GASTRITIS
  5. NEUROTROPIN [Concomitant]
     Indication: BACK PAIN
  6. FLAVIN-ADENINE DINUCLEOTIDE [Concomitant]
     Indication: KERATITIS
  7. SENNOSIDE [Concomitant]
     Indication: CONSTIPATION

REACTIONS (6)
  - RHABDOMYOLYSIS [None]
  - VOMITING [None]
  - DYSSTASIA [None]
  - GAIT DISTURBANCE [None]
  - DECREASED APPETITE [None]
  - ACTIVITIES OF DAILY LIVING IMPAIRED [None]
